FAERS Safety Report 20176952 (Version 3)
Quarter: 2021Q4

REPORT INFORMATION
  Report Type: Spontaneous
  Country: CZ (occurrence: CZ)
  Receive Date: 20211213
  Receipt Date: 20211228
  Transmission Date: 20220303
  Serious: Yes (Death, Life-Threatening, Hospitalization, Disabling, Other)
  Sender: FDA-Public Use
  Company Number: CZ-BAYER-2021A263551

PATIENT
  Age: 79 Year
  Sex: Female
  Weight: 70 kg

DRUGS (12)
  1. GADOBUTROL [Suspect]
     Active Substance: GADOBUTROL
     Indication: Renal neoplasm
     Dosage: 8 ML, ONCE
     Dates: start: 20211202
  2. ALLOPURINOL [Concomitant]
     Active Substance: ALLOPURINOL
     Indication: Magnetic resonance imaging
  3. ALLOPURINOL [Concomitant]
     Active Substance: ALLOPURINOL
     Indication: Magnetic resonance imaging
     Dosage: 1 MOL
     Route: 042
     Dates: start: 20211202
  4. SANDONORM [BOPINDOLOL] [Concomitant]
  5. PERINDOPRIL ARGININE [Concomitant]
     Active Substance: PERINDOPRIL ARGININE
  6. SPIRONOLACTONE [Concomitant]
     Active Substance: SPIRONOLACTONE
  7. DIOSMIN\HESPERIDIN [Concomitant]
     Active Substance: DIOSMIN\HESPERIDIN
  8. EUTHYROX [Concomitant]
     Active Substance: LEVOTHYROXINE SODIUM
  9. GLUCOPHAGE [Concomitant]
     Active Substance: METFORMIN HYDROCHLORIDE
  10. ASPIRIN\GLYCINE [Concomitant]
     Active Substance: ASPIRIN\GLYCINE
  11. BROMAZEPAM [Concomitant]
     Active Substance: BROMAZEPAM
  12. RIVOTRIL [Concomitant]
     Active Substance: CLONAZEPAM

REACTIONS (7)
  - Bradycardia [Fatal]
  - Coma [Fatal]
  - Heart rate increased [None]
  - Loss of consciousness [Unknown]
  - Respiratory arrest [Fatal]
  - Nausea [Unknown]
  - Death [Fatal]

NARRATIVE: CASE EVENT DATE: 20211202
